FAERS Safety Report 11758973 (Version 2)
Quarter: 2015Q4

REPORT INFORMATION
  Report Type: Spontaneous
  Country: US (occurrence: US)
  Receive Date: 20151120
  Receipt Date: 20151217
  Transmission Date: 20160304
  Serious: Yes (Other)
  Sender: FDA-Public Use
  Company Number: US-BAYER-2015-471319

PATIENT
  Age: 66 Year
  Sex: Female

DRUGS (1)
  1. ULTRAVIST [Suspect]
     Active Substance: IOPROMIDE
     Indication: UROGRAM
     Dosage: 100 ML, ONCE
     Dates: start: 20151103, end: 20151103

REACTIONS (2)
  - Dysphonia [None]
  - Blood pressure increased [None]

NARRATIVE: CASE EVENT DATE: 20151103
